FAERS Safety Report 18453061 (Version 2)
Quarter: 2020Q4

REPORT INFORMATION
  Report Type: Spontaneous
  Country: JP (occurrence: JP)
  Receive Date: 20201102
  Receipt Date: 20201102
  Transmission Date: 20210114
  Serious: Yes (Hospitalization)
  Sender: FDA-Public Use
  Company Number: JP-JNJFOC-20201028601

PATIENT
  Age: 37 Year
  Sex: Male

DRUGS (11)
  1. RISPERDAL [Suspect]
     Active Substance: RISPERIDONE
     Indication: AUTISM SPECTRUM DISORDER
     Route: 048
     Dates: start: 20150228, end: 2017
  2. RISPERDAL [Suspect]
     Active Substance: RISPERIDONE
     Route: 048
     Dates: start: 20180306, end: 20180319
  3. TOLNAFTATE. [Concomitant]
     Active Substance: TOLNAFTATE
     Dosage: DOSE UNKNOWN
     Route: 065
     Dates: start: 20150228
  4. RISPERDAL [Suspect]
     Active Substance: RISPERIDONE
     Route: 048
     Dates: start: 20180320, end: 20180625
  5. RISPERDAL [Suspect]
     Active Substance: RISPERIDONE
     Route: 048
     Dates: start: 2017, end: 20171016
  6. RISPERDAL [Suspect]
     Active Substance: RISPERIDONE
     Route: 048
     Dates: start: 20171017, end: 20171204
  7. DEPAS [Concomitant]
     Route: 048
     Dates: start: 20171205
  8. SEPAZON [Concomitant]
     Active Substance: CLOXAZOLAM
     Route: 048
  9. RISPERDAL [Suspect]
     Active Substance: RISPERIDONE
     Route: 048
     Dates: start: 20180626
  10. RISPERDAL [Suspect]
     Active Substance: RISPERIDONE
     Route: 048
     Dates: start: 20171205, end: 20180305
  11. DEPAS [Concomitant]
     Route: 048

REACTIONS (6)
  - Hospitalisation [Unknown]
  - Photophobia [Unknown]
  - Inappropriate schedule of product administration [Unknown]
  - Headache [Unknown]
  - Dry eye [Unknown]
  - Off label use [Unknown]

NARRATIVE: CASE EVENT DATE: 2015
